FAERS Safety Report 22910815 (Version 4)
Quarter: 2023Q4

REPORT INFORMATION
  Report Type: Report from Study
  Country: US (occurrence: US)
  Receive Date: 20230906
  Receipt Date: 20231007
  Transmission Date: 20240110
  Serious: No
  Sender: FDA-Public Use
  Company Number: US-AMGEN-USASL2023154821

PATIENT
  Age: 56 Year
  Sex: Female
  Weight: 88 kg

DRUGS (8)
  1. NEULASTA [Suspect]
     Active Substance: PEGFILGRASTIM
     Indication: Non-Hodgkin^s lymphoma
     Dosage: 6 MILLIGRAM
     Route: 065
  2. NEULASTA [Suspect]
     Active Substance: PEGFILGRASTIM
     Dosage: 6 MILLIGRAM
     Route: 065
  3. NEULASTA [Suspect]
     Active Substance: PEGFILGRASTIM
     Dosage: 6 MILLIGRAM
     Route: 065
  4. RITUXIMAB [Concomitant]
     Active Substance: RITUXIMAB
     Indication: Product used for unknown indication
     Dosage: UNK
     Route: 065
  5. VINCRISTINE [Concomitant]
     Active Substance: VINCRISTINE
  6. PREDNISONE [Concomitant]
     Active Substance: PREDNISONE
  7. CYCLOPHOSPHAMIDE [Concomitant]
     Active Substance: CYCLOPHOSPHAMIDE
  8. DOXORUBICIN [Concomitant]
     Active Substance: DOXORUBICIN

REACTIONS (1)
  - Device adhesion issue [Unknown]

NARRATIVE: CASE EVENT DATE: 20230829
